FAERS Safety Report 9913539 (Version 1)
Quarter: 2014Q1

REPORT INFORMATION
  Report Type: Spontaneous
  Country: TW (occurrence: None)
  Receive Date: 20140218
  Receipt Date: 20140218
  Transmission Date: 20141002
  Serious: Yes (Other)
  Sender: FDA-Public Use
  Company Number: FK201400497

PATIENT
  Age: 46 Year
  Sex: Male

DRUGS (2)
  1. CISPLATIN (MANUFACTURER UNKNOWN) (CISPLATIN) (CISPLATIN) [Suspect]
     Indication: LUNG SQUAMOUS CELL CARCINOMA METASTATIC
     Dosage: 100 MG, ON DAY ONE, INTRAVENOUS (NOT OTHERWISE SPECIFIED)??
     Route: 042
  2. PACLITAXEL (MANUFACTURER UNKNOWN) (PACLITAXEL) (PACLITAXEL) [Suspect]
     Indication: LUNG SQUAMOUS CELL CARCINOMA METASTATIC
     Dosage: 115 MG, ON DAY ONE, INTRAVENOUS (NOT OTHERWISE SPECIFED)
     Route: 042

REACTIONS (6)
  - Hypercalcaemia [None]
  - Dyspnoea [None]
  - Haemodialysis [None]
  - Pneumonia [None]
  - Sepsis [None]
  - Pneumocystis jirovecii infection [None]
